FAERS Safety Report 7572011-9 (Version None)
Quarter: 2011Q2

REPORT INFORMATION
  Report Type: 
  Country: None (occurrence: None)
  Receive Date: 20110624
  Receipt Date: 20110608
  Transmission Date: 20111010
  Serious: No
  Sender: FDA-Public Use
  Company Number: US-B.I. PHARMACEUTICALS,INC./RIDGEFIELD-2011-BP-14965BP

PATIENT
  Sex: Female

DRUGS (3)
  1. COZAAR [Concomitant]
     Indication: HYPOTENSION
     Dosage: 50 MG
     Route: 048
     Dates: start: 20000101
  2. PRADAXA [Suspect]
     Indication: ATRIAL FIBRILLATION
     Dosage: 300 MG
     Route: 048
     Dates: start: 20110502, end: 20110601
  3. PLAVIX [Concomitant]
     Indication: HEART VALVE REPLACEMENT
     Dosage: 75 MG
     Route: 048
     Dates: start: 20040101

REACTIONS (3)
  - MUSCLE SPASMS [None]
  - DYSPEPSIA [None]
  - MUSCULAR WEAKNESS [None]
